FAERS Safety Report 15112110 (Version 11)
Quarter: 2023Q1

REPORT INFORMATION
  Report Type: Report from Study
  Country: GB (occurrence: GB)
  Receive Date: 20180705
  Receipt Date: 20230118
  Transmission Date: 20230417
  Serious: Yes (Death, Hospitalization, Congenital Anomaly, Other)
  Sender: FDA-Public Use
  Company Number: GB-GILEAD-2018-0347708

PATIENT
  Age: 3 Month
  Sex: Male

DRUGS (60)
  1. EMTRICITABINE\TENOFOVIR DISOPROXIL FUMARATE [Suspect]
     Active Substance: EMTRICITABINE\TENOFOVIR DISOPROXIL FUMARATE
     Indication: HIV infection
     Dosage: 1 DOSAGE FORM, QD
     Route: 064
     Dates: start: 20171006, end: 20180205
  2. EMTRICITABINE\TENOFOVIR DISOPROXIL FUMARATE [Suspect]
     Active Substance: EMTRICITABINE\TENOFOVIR DISOPROXIL FUMARATE
     Indication: Supplementation therapy
     Dosage: 1 DOSAGE FORM, QD (MATERNAL DOSE)
     Route: 064
     Dates: start: 20171006
  3. EMTRICITABINE\TENOFOVIR DISOPROXIL FUMARATE [Suspect]
     Active Substance: EMTRICITABINE\TENOFOVIR DISOPROXIL FUMARATE
     Indication: Foetal exposure during pregnancy
  4. TENOFOVIR DISOPROXIL FUMARATE [Suspect]
     Active Substance: TENOFOVIR DISOPROXIL FUMARATE
     Indication: HIV infection
     Dosage: 1 DOSAGE FORM, QD
     Route: 064
     Dates: start: 20180205
  5. TENOFOVIR DISOPROXIL FUMARATE [Suspect]
     Active Substance: TENOFOVIR DISOPROXIL FUMARATE
     Indication: Supplementation therapy
     Dosage: 1 DOSAGE FORM, MATERNAL DOSE: 1 UG/LITRE, QD (1 TABLET/CAPSULE)
     Route: 064
     Dates: start: 20171006, end: 20180205
  6. TENOFOVIR DISOPROXIL FUMARATE [Suspect]
     Active Substance: TENOFOVIR DISOPROXIL FUMARATE
     Indication: Product used for unknown indication
     Dosage: 1 DOSAGE FORM, QD THERAPY DATE 06-OCT-2017
     Route: 064
     Dates: end: 20180205
  7. EMTRICITABINE [Suspect]
     Active Substance: EMTRICITABINE
     Indication: Product used for unknown indication
     Dosage: 1 DOSAGE FORM, QD
     Route: 064
     Dates: start: 20180205
  8. EMTRICITABINE [Suspect]
     Active Substance: EMTRICITABINE
     Dosage: 1 DOSAGE FORM, QD (1 TABLET/CAPSULE, QD)
     Route: 064
     Dates: start: 20171006
  9. EFAVIRENZ [Suspect]
     Active Substance: EFAVIRENZ
     Indication: HIV infection
     Dosage: MATERNAL DOSE: 1 DF, QD
     Route: 064
     Dates: start: 20171006, end: 20180205
  10. EFAVIRENZ [Suspect]
     Active Substance: EFAVIRENZ
     Indication: Foetal exposure during pregnancy
     Dosage: 1 DOSAGE FORM MATERNAL DOSE: 1 UG/LITRE, QD (1 TABLET/CAPSULE)
     Dates: start: 20171006
  11. EFAVIRENZ [Suspect]
     Active Substance: EFAVIRENZ
     Dosage: 1 DOSAGE FORM, QD
     Route: 064
  12. FOLATE SODIUM [Suspect]
     Active Substance: FOLATE SODIUM
     Indication: Supplementation therapy
     Dosage: UNK,1 DF, QD (1 TABLET/CAPSULE, DAILY )
     Route: 064
  13. FOLATE SODIUM [Suspect]
     Active Substance: FOLATE SODIUM
     Indication: Foetal exposure during pregnancy
     Dosage: UNK
     Route: 064
  14. LABETALOL [Suspect]
     Active Substance: LABETALOL\LABETALOL HYDROCHLORIDE
     Indication: Product used for unknown indication
     Dosage: MATERNAL DOSE: 300 MG
     Route: 064
     Dates: start: 20090101, end: 20100610
  15. LABETALOL [Suspect]
     Active Substance: LABETALOL\LABETALOL HYDROCHLORIDE
     Indication: Foetal exposure during pregnancy
     Dosage: UNK
     Route: 064
  16. METFORMIN [Suspect]
     Active Substance: METFORMIN HYDROCHLORIDE
     Indication: Product used for unknown indication
     Dosage: MATERNAL DOSE: 400 MG, QD
     Route: 064
     Dates: start: 20090101, end: 20100610
  17. METFORMIN [Suspect]
     Active Substance: METFORMIN HYDROCHLORIDE
     Indication: Foetal exposure during pregnancy
     Dosage: UNK
     Route: 064
  18. LAMIVUDINE [Suspect]
     Active Substance: LAMIVUDINE
     Indication: HIV infection
     Dosage: MATERNAL DOSE: 300 MG ORAL
     Route: 064
     Dates: start: 20090101, end: 20100610
  19. LAMIVUDINE [Suspect]
     Active Substance: LAMIVUDINE
     Indication: Product used for unknown indication
  20. LAMIVUDINE [Suspect]
     Active Substance: LAMIVUDINE
     Indication: Antiretroviral therapy
  21. LAMIVUDINE [Suspect]
     Active Substance: LAMIVUDINE
     Indication: Foetal exposure during pregnancy
  22. ZIDOVUDINE [Suspect]
     Active Substance: ZIDOVUDINE
     Indication: HIV infection
     Dosage: 800 MILLIGRAM, QD
     Route: 064
     Dates: start: 20100610
  23. ZIDOVUDINE [Suspect]
     Active Substance: ZIDOVUDINE
     Indication: Product used for unknown indication
     Dosage: MATERNAL DOSE: 600 MG, QD
     Route: 064
     Dates: start: 20090110, end: 20100610
  24. ZIDOVUDINE [Suspect]
     Active Substance: ZIDOVUDINE
     Indication: Antiviral treatment
     Dosage: 800 MILLIGRAM, QD
     Route: 064
     Dates: start: 20090110, end: 20100610
  25. ZIDOVUDINE [Suspect]
     Active Substance: ZIDOVUDINE
     Indication: Foetal exposure during pregnancy
  26. NEVIRAPINE [Suspect]
     Active Substance: NEVIRAPINE
     Indication: Antiretroviral therapy
     Dosage: MATERNAL DOSE:400 MG, QD
     Route: 064
     Dates: start: 20090101, end: 20100610
  27. NEVIRAPINE [Suspect]
     Active Substance: NEVIRAPINE
     Indication: Antiviral treatment
  28. NEVIRAPINE [Suspect]
     Active Substance: NEVIRAPINE
     Indication: Product used for unknown indication
  29. NEVIRAPINE [Suspect]
     Active Substance: NEVIRAPINE
     Indication: Foetal exposure during pregnancy
  30. ISENTRESS [Suspect]
     Active Substance: RALTEGRAVIR POTASSIUM
     Indication: HIV infection
     Dosage: 3200 MILLIGRAM, QD(800 MILLIGRAM, QID)
     Route: 064
     Dates: start: 20100610
  31. LOPINAVIR\RITONAVIR [Suspect]
     Active Substance: LOPINAVIR\RITONAVIR
     Indication: HIV infection
     Dosage: MATERNAL DOSE: UNK
     Route: 064
     Dates: start: 20100610
  32. LOPINAVIR\RITONAVIR [Suspect]
     Active Substance: LOPINAVIR\RITONAVIR
     Indication: Product used for unknown indication
     Dosage: MATERNAL DOSE: UNK
     Route: 064
     Dates: end: 20100610
  33. LOPINAVIR\RITONAVIR [Suspect]
     Active Substance: LOPINAVIR\RITONAVIR
     Indication: HIV infection
  34. LOPINAVIR\RITONAVIR [Suspect]
     Active Substance: LOPINAVIR\RITONAVIR
     Indication: Antiviral treatment
  35. LOPINAVIR\RITONAVIR [Suspect]
     Active Substance: LOPINAVIR\RITONAVIR
     Indication: Foetal exposure during pregnancy
  36. EFAVIRENZ [Suspect]
     Active Substance: EFAVIRENZ
     Indication: HIV infection
     Dosage: MATERNAL DOSE: 1 DOSAGE FORM, QD (1 TABLET/CAPSULE, DAILY)
     Route: 064
     Dates: start: 20171006, end: 20180205
  37. EFAVIRENZ [Suspect]
     Active Substance: EFAVIRENZ
     Indication: Product used for unknown indication
     Dosage: MATERNAL DOSE: 1 DOSAGE FORM, QD (1 TABLET/CAPSULE)
     Route: 064
     Dates: start: 20171006
  38. EFAVIRENZ [Suspect]
     Active Substance: EFAVIRENZ
     Indication: Foetal exposure during pregnancy
  39. COBAMAMIDE [Suspect]
     Active Substance: COBAMAMIDE
     Indication: Supplementation therapy
     Dosage: UNK
     Route: 064
     Dates: start: 20100610
  40. INSULIN ASPART [Suspect]
     Active Substance: INSULIN ASPART
     Indication: Foetal exposure during pregnancy
     Dosage: SUSPENSION FOR INJECTION
     Route: 064
  41. INSULIN ASPART [Suspect]
     Active Substance: INSULIN ASPART
     Dosage: MATERNAL DOSE: UNKNOWN
  42. INSULIN ASPART [Suspect]
     Active Substance: INSULIN ASPART
     Dosage: SUSPENSION FOR INJECTION
     Route: 064
  43. INSULIN ASPART [Suspect]
     Active Substance: INSULIN ASPART
     Dosage: UNK, QW
  44. INSULIN ASPART [Suspect]
     Active Substance: INSULIN ASPART
     Indication: Foetal exposure during pregnancy
     Dosage: UNK
     Route: 064
  45. INSULIN ASPART [Suspect]
     Active Substance: INSULIN ASPART
     Indication: Product used for unknown indication
  46. LOPINAVIR [Suspect]
     Active Substance: LOPINAVIR
     Indication: Product used for unknown indication
     Dosage: MATERNAL DOSE: UNK
     Route: 064
     Dates: start: 20100610
  47. LOPINAVIR [Suspect]
     Active Substance: LOPINAVIR
     Indication: Antiviral treatment
  48. LOPINAVIR [Suspect]
     Active Substance: LOPINAVIR
     Indication: HIV infection
  49. FOLIC ACID [Suspect]
     Active Substance: FOLIC ACID
     Indication: Foetal exposure during pregnancy
     Dosage: MATERNAL DOSE: UNK
     Route: 064
  50. LOPINAVIR\RITONAVIR [Suspect]
     Active Substance: LOPINAVIR\RITONAVIR
     Indication: Antiviral treatment
     Dosage: UNK
     Route: 064
     Dates: start: 20100610
  51. KALETRA [Suspect]
     Active Substance: LOPINAVIR\RITONAVIR
     Indication: Product used for unknown indication
     Dosage: MATERNAL DOSE: UNK
     Route: 064
     Dates: start: 20100610
  52. KALETRA [Suspect]
     Active Substance: LOPINAVIR\RITONAVIR
     Indication: HIV infection
  53. KALETRA [Suspect]
     Active Substance: LOPINAVIR\RITONAVIR
     Indication: Foetal exposure during pregnancy
  54. FOLATE SODIUM [Suspect]
     Active Substance: FOLATE SODIUM
     Indication: Foetal exposure during pregnancy
     Dosage: UNK
     Route: 064
  55. FOLATE SODIUM [Suspect]
     Active Substance: FOLATE SODIUM
     Indication: Supplementation therapy
  56. RITONAVIR [Suspect]
     Active Substance: RITONAVIR
     Indication: HIV infection
     Dosage: UNK
     Route: 064
     Dates: start: 20100610
  57. RITONAVIR [Suspect]
     Active Substance: RITONAVIR
     Indication: Antiviral treatment
  58. RITONAVIR [Suspect]
     Active Substance: RITONAVIR
     Indication: Product used for unknown indication
  59. TENOFOVIR [Suspect]
     Active Substance: TENOFOVIR
     Indication: HIV infection
     Dosage: 300 MILLIGRAM, QD
     Route: 064
     Dates: start: 20100610
  60. TENOFOVIR [Suspect]
     Active Substance: TENOFOVIR
     Indication: Foetal exposure during pregnancy

REACTIONS (6)
  - Trisomy 18 [Fatal]
  - Hydrops foetalis [Fatal]
  - Ultrasound antenatal screen [Fatal]
  - Foetal exposure during pregnancy [Fatal]
  - Cleft lip and palate [Fatal]
  - Off label use [Unknown]

NARRATIVE: CASE EVENT DATE: 20171006
